FAERS Safety Report 5965627-4 (Version None)
Quarter: 2008Q4

REPORT INFORMATION
  Report Type: 
  Country: None (occurrence: None)
  Receive Date: 20081119
  Receipt Date: 20080910
  Transmission Date: 20090506
  Serious: No
  Sender: FDA-Public Use
  Company Number: WAES 0809USA01565

PATIENT
  Sex: Male

DRUGS (4)
  1. JANUVIA [Suspect]
     Dosage: 50 MG/DAILY/PO ; 75 MG/DAILY/PO ; 25 MG/DAILY/PO ; 100 MG/DAILY/PO
     Route: 048
     Dates: start: 20080101
  2. JANUVIA [Suspect]
     Dosage: 50 MG/DAILY/PO ; 75 MG/DAILY/PO ; 25 MG/DAILY/PO ; 100 MG/DAILY/PO
     Route: 048
     Dates: start: 20080801
  3. JANUVIA [Suspect]
     Dosage: 50 MG/DAILY/PO ; 75 MG/DAILY/PO ; 25 MG/DAILY/PO ; 100 MG/DAILY/PO
     Route: 048
     Dates: start: 20080827
  4. JANUVIA [Suspect]
     Dosage: 50 MG/DAILY/PO ; 75 MG/DAILY/PO ; 25 MG/DAILY/PO ; 100 MG/DAILY/PO
     Route: 048
     Dates: start: 20080901

REACTIONS (1)
  - DRUG INEFFECTIVE [None]
